FAERS Safety Report 6256383-3 (Version None)
Quarter: 2009Q3

REPORT INFORMATION
  Report Type: 
  Country: None (occurrence: None)
  Receive Date: 20090706
  Receipt Date: 20090625
  Transmission Date: 20100115
  Serious: Yes (Disabling)
  Sender: FDA-Public Use
  Company Number: NL-AMGEN-US353808

PATIENT
  Sex: Female

DRUGS (2)
  1. ENBREL [Suspect]
     Indication: RHEUMATOID ARTHRITIS
     Dosage: LYO: 50 MG WITH UNKNOWN FREQUENCY
     Dates: start: 20020101, end: 20070101
  2. ENBREL [Suspect]
     Dosage: PFS: 50 MG WITH UNKNOWN FREQUENCY
     Dates: start: 20070101, end: 20090101

REACTIONS (3)
  - AMNESIA [None]
  - DEMYELINATION [None]
  - INJECTION SITE PAIN [None]
